FAERS Safety Report 8555679-X (Version None)
Quarter: 2012Q3

REPORT INFORMATION
  Report Type: 
  Country: None (occurrence: None)
  Receive Date: 20120801
  Receipt Date: 20120725
  Transmission Date: 20120928
  Serious: Yes (Hospitalization)
  Sender: FDA-Public Use
  Company Number: SE-009507513-1207SWE011548

PATIENT

DRUGS (2)
  1. REBETOL [Suspect]
     Indication: HEPATITIS
     Dosage: 800 MG, QD
     Route: 048
     Dates: start: 20010215, end: 20010522
  2. PEG-INTRON [Suspect]
     Indication: HEPATITIS
     Dosage: 60 MICROGRAM, UNK
     Dates: start: 20010215, end: 20010522

REACTIONS (11)
  - NAUSEA [None]
  - RED BLOOD CELL SEDIMENTATION RATE INCREASED [None]
  - FATIGUE [None]
  - ALOPECIA [None]
  - HYPERTHYROIDISM [None]
  - PAIN [None]
  - ORAL MUCOSAL BLISTERING [None]
  - WEIGHT DECREASED [None]
  - RASH [None]
  - INFECTION SUSCEPTIBILITY INCREASED [None]
  - PSORIASIS [None]
